FAERS Safety Report 17471571 (Version 2)
Quarter: 2020Q1

REPORT INFORMATION
  Report Type: Report from Study
  Country: US (occurrence: US)
  Receive Date: 20200228
  Receipt Date: 20200323
  Transmission Date: 20200409
  Serious: Yes (Other)
  Sender: FDA-Public Use
  Company Number: US-ASTELLAS-2020US006750

PATIENT
  Age: 77 Year
  Sex: Male

DRUGS (1)
  1. ENZALUTAMIDE [Suspect]
     Active Substance: ENZALUTAMIDE
     Indication: PRODUCT USED FOR UNKNOWN INDICATION
     Route: 065

REACTIONS (10)
  - Neuropathy peripheral [Unknown]
  - Pruritus [Unknown]
  - Dry skin [Unknown]
  - Skin exfoliation [Unknown]
  - Mobility decreased [Unknown]
  - Headache [Unknown]
  - Dizziness [Unknown]
  - Asthenia [Unknown]
  - Fall [Unknown]
  - Solar lentigo [Recovering/Resolving]

NARRATIVE: CASE EVENT DATE: 20200317
